FAERS Safety Report 8780481 (Version 1)
Quarter: 2012Q4

REPORT INFORMATION
  Report Type: Spontaneous
  Country: JM (occurrence: None)
  Receive Date: 20120906
  Receipt Date: 20120906
  Transmission Date: 20130627
  Serious: Yes (Life-Threatening, Hospitalization, Disabling)
  Sender: FDA-Public Use
  Company Number: None

PATIENT
  Sex: Female

DRUGS (3)
  1. SULFATRIM [Suspect]
     Dosage: 2 times daily
     Route: 048
     Dates: start: 20120501, end: 20120507
  2. APO-ALPRAZOLAM [Concomitant]
  3. LOTRISONE [Concomitant]

REACTIONS (11)
  - Influenza like illness [None]
  - Ocular hyperaemia [None]
  - Coma [None]
  - Alopecia [None]
  - Scar [None]
  - Tongue disorder [None]
  - Oral disorder [None]
  - Gait disturbance [None]
  - Onychomadesis [None]
  - Feeling hot [None]
  - Visual acuity reduced [None]
